FAERS Safety Report 16334897 (Version 1)
Quarter: 2019Q2

REPORT INFORMATION
  Report Type: Spontaneous
  Country: US (occurrence: US)
  Receive Date: 20190520
  Receipt Date: 20190520
  Transmission Date: 20190711
  Serious: Yes (Other)
  Sender: FDA-Public Use
  Company Number: PHEH2019US021211

PATIENT
  Age: 55 Year
  Sex: Female

DRUGS (1)
  1. TASIGNA [Suspect]
     Active Substance: NILOTINIB
     Indication: CHRONIC MYELOID LEUKAEMIA
     Dosage: 150 MG, BID
     Route: 065
     Dates: start: 201704

REACTIONS (10)
  - Mitral valve incompetence [Unknown]
  - Peripheral arterial occlusive disease [Unknown]
  - Peripheral ischaemia [Unknown]
  - Gangrene [Unknown]
  - Arteriosclerosis [Unknown]
  - Wound infection [Unknown]
  - Aortic valve sclerosis [Unknown]
  - Cellulitis [Unknown]
  - Peripheral artery stenosis [Unknown]
  - Tricuspid valve incompetence [Unknown]

NARRATIVE: CASE EVENT DATE: 20180607
